FAERS Safety Report 23257265 (Version 1)
Quarter: 2023Q4

REPORT INFORMATION
  Report Type: Spontaneous
  Country: CN (occurrence: CN)
  Receive Date: 20231204
  Receipt Date: 20231204
  Transmission Date: 20240110
  Serious: Yes (Other)
  Sender: FDA-Public Use
  Company Number: CN-MLMSERVICE-20231116-4665922-1

PATIENT
  Age: 7 Decade

DRUGS (3)
  1. CISPLATIN [Suspect]
     Active Substance: CISPLATIN
     Indication: Small cell lung cancer extensive stage
     Dates: start: 2020, end: 2020
  2. ETOPOSIDE [Suspect]
     Active Substance: ETOPOSIDE
     Indication: Small cell lung cancer extensive stage
     Dates: start: 2020, end: 2020
  3. DURVALUMAB [Concomitant]
     Active Substance: DURVALUMAB
     Indication: Small cell lung cancer extensive stage
     Dosage: Q3W
     Dates: start: 2020

REACTIONS (2)
  - Myelosuppression [Recovering/Resolving]
  - Leukopenia [Recovering/Resolving]

NARRATIVE: CASE EVENT DATE: 20200101
